FAERS Safety Report 9498545 (Version 1)
Quarter: 2013Q3

REPORT INFORMATION
  Report Type: Spontaneous
  Country: US (occurrence: US)
  Receive Date: 20130904
  Receipt Date: 20130904
  Transmission Date: 20140515
  Serious: No
  Sender: FDA-Public Use
  Company Number: US-PFIZER INC-2013251154

PATIENT
  Age: 62 Year
  Sex: Female
  Weight: 59.9 kg

DRUGS (1)
  1. FLECTOR [Suspect]
     Indication: ARTHRALGIA
     Dosage: UNK
     Dates: start: 20130828

REACTIONS (1)
  - Drug ineffective [Unknown]
